FAERS Safety Report 9012294 (Version 1)
Quarter: 2012Q4

REPORT INFORMATION
  Report Type: Spontaneous
  Country: US (occurrence: None)
  Receive Date: 20121231
  Receipt Date: 20121231
  Transmission Date: 20130627
  Serious: Yes (Hospitalization, Other)
  Sender: FDA-Public Use
  Company Number: US-ZYDUS-000854

PATIENT
  Age: 13 Year

DRUGS (3)
  1. BENZONATATE [Suspect]
     Route: 048
  2. CHLORPHENIRAMINE (CHLORPHENIRAMIRAMINE) [Concomitant]
  3. DEXTROMETHORPHAN (DEXTROMETHORPHAN) [Concomitant]

REACTIONS (4)
  - Toxicity to various agents [None]
  - Coma [None]
  - Convulsion [None]
  - Metabolic acidosis [None]
